FAERS Safety Report 20833979 (Version 1)
Quarter: 2022Q2

REPORT INFORMATION
  Report Type: Spontaneous
  Country: TW (occurrence: TW)
  Receive Date: 20220516
  Receipt Date: 20220516
  Transmission Date: 20220721
  Serious: Yes (Life-Threatening)
  Sender: FDA-Public Use
  Company Number: TW-Fresenius Kabi-FK202205554

PATIENT
  Age: 69 Year
  Sex: Female
  Weight: 44.6 kg

DRUGS (1)
  1. BUPIVACAINE [Suspect]
     Active Substance: BUPIVACAINE
     Indication: Spinal anaesthesia

REACTIONS (1)
  - Anaphylactic reaction [Recovered/Resolved]
